FAERS Safety Report 5770243-3 (Version None)
Quarter: 2008Q2

REPORT INFORMATION
  Report Type: 
  Country: None (occurrence: None)
  Receive Date: 20080613
  Receipt Date: 20080521
  Transmission Date: 20081010
  Serious: No
  Sender: FDA-Public Use
  Company Number: US-ABBOTT-08P-163-0449620-00

PATIENT
  Sex: Female
  Weight: 108.05 kg

DRUGS (19)
  1. HUMIRA [Suspect]
     Indication: PSORIASIS
     Dosage: STARTER DOSE
     Route: 058
     Dates: start: 20080427, end: 20080427
  2. HUMIRA [Suspect]
     Indication: PSORIATIC ARTHROPATHY
     Route: 058
     Dates: start: 20080505, end: 20080505
  3. HUMIRA [Suspect]
     Route: 058
  4. INSULIN NOVOLOG MIX 70/30 [Concomitant]
     Indication: DIABETES MELLITUS
     Dosage: 50 UNITS IN MORNING AND 40 UNITS IN THE EVENING
     Route: 058
  5. CENTRUM SILVER [Concomitant]
     Indication: VITAMIN SUPPLEMENTATION
     Route: 048
  6. ASPIRIN [Concomitant]
     Indication: PAIN
     Route: 048
  7. POTASSIUM CHLORIDE [Concomitant]
     Indication: MINERAL SUPPLEMENTATION
     Dosage: 2-10MEQ IN AM AND 2-10MEQ IN THE PM
     Route: 048
  8. NAPROXEN [Concomitant]
     Indication: PAIN
     Route: 048
  9. PHENYTOIN [Concomitant]
     Indication: ANXIETY
     Dosage: 2-100MG TAB IN AM AND 2-100MG TABS IN PM
     Route: 048
  10. PHENYTOIN [Concomitant]
     Indication: CONVULSION
  11. CLORAZEPATE DIPOTASSIUM [Concomitant]
     Indication: ANXIETY
     Dosage: 7.5MG IN AM AND 7.5MG IN PM
     Route: 048
  12. CLORAZEPATE DIPOTASSIUM [Concomitant]
     Indication: CONVULSION
  13. FUROSEMIDE [Concomitant]
     Indication: FLUID RETENTION
     Dosage: 40MG TAB; HALF IN AM AND HALF IN PM
     Route: 048
  14. METOLAZONE [Concomitant]
     Indication: FLUID RETENTION
     Dosage: 5MG TABS ONE OR TWO AS NEEDED
     Route: 048
  15. EZETIMIBE [Concomitant]
     Indication: BLOOD CHOLESTEROL INCREASED
     Route: 048
  16. METHIMAZOLE [Concomitant]
     Indication: HYPERTHYROIDISM
     Dosage: 5.0MG TAB; HALF IN THE AM
     Route: 048
  17. ALLOPURINOL [Concomitant]
     Indication: ARTHRITIS
     Route: 048
  18. DEVONEX CREAM [Concomitant]
     Indication: DRY SKIN
     Dosage: 5% ON SKIN ONE OF TWO TIMES DAILY
     Route: 061
  19. LYMOGIN [Concomitant]
     Indication: CATARACT
     Dosage: 3% SOLUTION
     Route: 047

REACTIONS (6)
  - ASTHENIA [None]
  - BACK PAIN [None]
  - DIZZINESS [None]
  - HEADACHE [None]
  - INJECTION SITE BRUISING [None]
  - MUSCULAR WEAKNESS [None]
